FAERS Safety Report 6694141-6 (Version None)
Quarter: 2010Q2

REPORT INFORMATION
  Report Type: 
  Country: None (occurrence: None)
  Receive Date: 20100423
  Receipt Date: 20090811
  Transmission Date: 20101027
  Serious: Yes (Other)
  Sender: FDA-Public Use
  Company Number: A0798455A

PATIENT
  Age: 27 Year
  Sex: Female

DRUGS (2)
  1. FLOVENT [Suspect]
     Indication: ASTHMA
     Route: 055
  2. ALBUTEROL NEBULIZED [Concomitant]

REACTIONS (3)
  - ASTHMA [None]
  - COUGH [None]
  - WHEEZING [None]
